FAERS Safety Report 6208221-2 (Version None)
Quarter: 2009Q2

REPORT INFORMATION
  Report Type: 
  Country: None (occurrence: None)
  Receive Date: 20090529
  Receipt Date: 20090526
  Transmission Date: 20091009
  Serious: Yes (Hospitalization, Other)
  Sender: FDA-Public Use
  Company Number: ES-ROXANE LABORATORIES, INC.-2009-RO-00522RO

PATIENT
  Age: 62 Year
  Sex: Male

DRUGS (13)
  1. CYCLOPHOSPHAMIDE [Suspect]
     Indication: GLOMERULONEPHRITIS RAPIDLY PROGRESSIVE
  2. ANGIOTENSIN II RECEPTOR BLOCKER [Suspect]
     Indication: HYPERTENSION
  3. SIMVASTATIN [Suspect]
     Indication: DYSLIPIDAEMIA
  4. RANITIDINE [Suspect]
     Indication: DUODENAL ULCER
  5. METHYLPREDNISOLONE [Suspect]
     Indication: GLOMERULONEPHRITIS RAPIDLY PROGRESSIVE
     Dosage: 30MG
     Route: 048
  6. METHYLPREDNISOLONE [Suspect]
     Dosage: 80MG
  7. OXYGEN [Suspect]
     Indication: ACUTE RESPIRATORY FAILURE
  8. DIURETICS [Suspect]
  9. LEVOFLOXACIN [Suspect]
     Indication: ANTIBIOTIC THERAPY
  10. MEROPENEM [Suspect]
     Indication: ANTIBIOTIC THERAPY
  11. CO-TRIMOXAZOLE [Suspect]
     Indication: ANTIBIOTIC THERAPY
  12. RED BLOOD CELLS [Concomitant]
     Indication: ANAEMIA
  13. INSULIN [Concomitant]

REACTIONS (5)
  - ACUTE RESPIRATORY FAILURE [None]
  - ANAEMIA [None]
  - LEFT VENTRICULAR HYPERTROPHY [None]
  - PNEUMONITIS [None]
  - PULMONARY TOXICITY [None]
